FAERS Safety Report 16637743 (Version 4)
Quarter: 2019Q4

REPORT INFORMATION
  Report Type: Spontaneous
  Country: JP (occurrence: JP)
  Receive Date: 20190726
  Receipt Date: 20191205
  Transmission Date: 20200122
  Serious: Yes (Hospitalization)
  Sender: FDA-Public Use
  Company Number: JP-ASTRAZENECA-2019SF05054

PATIENT
  Age: 71 Year
  Sex: Female
  Weight: 39 kg

DRUGS (4)
  1. REBAMIPIDE [Concomitant]
     Active Substance: REBAMIPIDE
     Dosage: DOSE UNKNOWN
     Route: 065
  2. MOHRUS [Concomitant]
     Active Substance: KETOPROFEN
     Dosage: DOSE UNKNOWN
     Route: 065
  3. BAYASPIRIN [Concomitant]
     Active Substance: ASPIRIN
     Route: 048
     Dates: start: 20100910, end: 20190720
  4. LYNPARZA [Suspect]
     Active Substance: OLAPARIB
     Indication: OVARIAN CANCER
     Route: 048
     Dates: start: 20190509, end: 20190701

REACTIONS (8)
  - Stomatitis [Unknown]
  - Malaise [Recovered/Resolved]
  - Blood pressure decreased [Unknown]
  - Oedema peripheral [Unknown]
  - Depressive symptom [Unknown]
  - Interstitial lung disease [Recovering/Resolving]
  - Nausea [Unknown]
  - Dizziness [Unknown]

NARRATIVE: CASE EVENT DATE: 20190516
